FAERS Safety Report 11318103 (Version 1)
Quarter: 2015Q3

REPORT INFORMATION
  Report Type: Spontaneous
  Country: SE (occurrence: SE)
  Receive Date: 20150728
  Receipt Date: 20150728
  Transmission Date: 20151125
  Serious: Yes (Other)
  Sender: FDA-Public Use
  Company Number: SE-PFIZER INC-2015246260

PATIENT
  Age: 58 Year
  Sex: Male

DRUGS (4)
  1. CIPROXIN /00697201/ [Suspect]
     Active Substance: CIPROFLOXACIN
     Indication: PNEUMONIA
     Route: 048
     Dates: start: 20150601, end: 20150603
  2. DALACIN [Suspect]
     Active Substance: CLINDAMYCIN\CLINDAMYCIN PHOSPHATE
     Indication: PNEUMONIA
     Dosage: 300 MG, 3X/DAY
     Route: 048
     Dates: start: 20150601, end: 20150603
  3. DALACIN [Suspect]
     Active Substance: CLINDAMYCIN\CLINDAMYCIN PHOSPHATE
     Indication: PNEUMONIA
     Dosage: UNK
     Route: 042
     Dates: start: 201505, end: 20150531
  4. CIPROXIN /00697201/ [Suspect]
     Active Substance: CIPROFLOXACIN
     Indication: PNEUMONIA
     Dosage: UNK
     Route: 042
     Dates: start: 201505, end: 20150531

REACTIONS (3)
  - Skin reaction [Recovered/Resolved]
  - Pyrexia [Recovered/Resolved]
  - Blood pressure decreased [Recovered/Resolved]

NARRATIVE: CASE EVENT DATE: 20150601
